FAERS Safety Report 5158748-X (Version None)
Quarter: 2006Q4

REPORT INFORMATION
  Report Type: 
  Country: None (occurrence: None)
  Receive Date: 20061128
  Receipt Date: 20051012
  Transmission Date: 20070319
  Serious: Yes (Death, Hospitalization)
  Sender: FDA-Public Use
  Company Number: FR-ROCHE-421074

PATIENT
  Age: 56 Year
  Sex: Female

DRUGS (5)
  1. INTERFERON ALFA-2A [Suspect]
     Route: 058
     Dates: start: 20050418, end: 20050701
  2. QUINAPRIL HYDROCHLORIDE AND HYDROCHLOROTHIAZDE [Concomitant]
  3. ACETAMINOPHEN [Concomitant]
  4. PRIMPERAN TAB [Concomitant]
  5. SILOMAT [Concomitant]

REACTIONS (3)
  - BRAIN DEATH [None]
  - CEREBRAL HAEMORRHAGE [None]
  - COMA [None]
